FAERS Safety Report 9854670 (Version 1)
Quarter: 2014Q1

REPORT INFORMATION
  Report Type: Spontaneous
  Country: US (occurrence: US)
  Receive Date: 20140130
  Receipt Date: 20140130
  Transmission Date: 20141002
  Serious: No
  Sender: FDA-Public Use
  Company Number: US-BIOGENIDEC-2014BI008210

PATIENT
  Age: 56 Year
  Sex: Female

DRUGS (10)
  1. TECFIDERA [Suspect]
     Indication: MULTIPLE SCLEROSIS
     Route: 048
     Dates: start: 201312
  2. TRAMADOL HCL [Concomitant]
  3. CITALOPRAM HBR [Concomitant]
  4. SIMVASTATIN [Concomitant]
  5. ALPRAZOLAM [Concomitant]
  6. PERSANTINE [Concomitant]
  7. KEPPRA [Concomitant]
  8. METOPROLOL TARTRATE [Concomitant]
  9. CALCIUM +D + MIN CHEW [Concomitant]
  10. ARICEPT [Concomitant]

REACTIONS (4)
  - Prescribed underdose [Unknown]
  - Constipation [Recovered/Resolved]
  - Muscle tightness [Unknown]
  - Diarrhoea [Recovered/Resolved]
